FAERS Safety Report 7138195-1 (Version None)
Quarter: 2010Q4

REPORT INFORMATION
  Report Type: 
  Country: None (occurrence: None)
  Receive Date: 20101206
  Receipt Date: 20101124
  Transmission Date: 20110411
  Serious: Yes (Death, Hospitalization)
  Sender: FDA-Public Use
  Company Number: FR-ROCHE-663161

PATIENT
  Sex: Male

DRUGS (4)
  1. MYCOPHENOLATE MOFETIL [Suspect]
     Route: 065
     Dates: start: 20060721, end: 20091116
  2. NEORAL [Suspect]
     Route: 048
     Dates: start: 20060721, end: 20091126
  3. CORTANCYL [Suspect]
     Route: 065
     Dates: start: 20091115
  4. ANDROTARDYL [Concomitant]
     Dates: start: 20060913

REACTIONS (2)
  - BLADDER ADENOCARCINOMA STAGE UNSPECIFIED [None]
  - METASTASES TO PERITONEUM [None]
